FAERS Safety Report 9393490 (Version 1)
Quarter: 2013Q3

REPORT INFORMATION
  Report Type: Spontaneous
  Country: IL (occurrence: IL)
  Receive Date: 20130710
  Receipt Date: 20130710
  Transmission Date: 20140515
  Serious: Yes (Other)
  Sender: FDA-Public Use
  Company Number: PHHY2013IL069597

PATIENT
  Age: 38 Year
  Sex: Female

DRUGS (1)
  1. METOPROLOL [Suspect]
     Dosage: 25 MG, BID

REACTIONS (3)
  - Pulmonary congestion [Unknown]
  - Maternal exposure during pregnancy [Unknown]
  - Normal newborn [Unknown]
